FAERS Safety Report 26193002 (Version 1)
Quarter: 2025Q4

REPORT INFORMATION
  Report Type: Spontaneous
  Country: EU (occurrence: EU)
  Receive Date: 20251223
  Receipt Date: 20251223
  Transmission Date: 20260118
  Serious: Yes (Other)
  Sender: MYLAN
  Company Number: None

PATIENT
  Age: 40 Year
  Sex: Male

DRUGS (28)
  1. LANSOPRAZOLE [Suspect]
     Active Substance: LANSOPRAZOLE
     Indication: Product used for unknown indication
     Dosage: 30 MILLIGRAM
     Route: 061
  2. LANSOPRAZOLE [Suspect]
     Active Substance: LANSOPRAZOLE
     Dosage: 30 MILLIGRAM
     Route: 048
  3. LANSOPRAZOLE [Suspect]
     Active Substance: LANSOPRAZOLE
     Dosage: 30 MILLIGRAM
     Route: 048
  4. LANSOPRAZOLE [Suspect]
     Active Substance: LANSOPRAZOLE
     Dosage: 30 MILLIGRAM
     Route: 061
  5. CELECOXIB [Suspect]
     Active Substance: CELECOXIB
     Indication: Ankylosing spondylitis
     Dosage: 200 MILLIGRAM
     Route: 061
  6. CELECOXIB [Suspect]
     Active Substance: CELECOXIB
     Dosage: 200 MILLIGRAM
     Route: 048
  7. CELECOXIB [Suspect]
     Active Substance: CELECOXIB
     Dosage: 200 MILLIGRAM
     Route: 048
  8. CELECOXIB [Suspect]
     Active Substance: CELECOXIB
     Dosage: 200 MILLIGRAM
     Route: 061
  9. FEBUXOSTAT [Suspect]
     Active Substance: FEBUXOSTAT
     Indication: Gouty tophus
     Dosage: 120 MILLIGRAM
     Route: 061
  10. FEBUXOSTAT [Suspect]
     Active Substance: FEBUXOSTAT
     Dosage: 120 MILLIGRAM
     Route: 048
  11. FEBUXOSTAT [Suspect]
     Active Substance: FEBUXOSTAT
     Dosage: 120 MILLIGRAM
     Route: 048
  12. FEBUXOSTAT [Suspect]
     Active Substance: FEBUXOSTAT
     Dosage: 120 MILLIGRAM
     Route: 061
  13. BACLOFEN [Suspect]
     Active Substance: BACLOFEN
     Indication: Alcoholism
     Dosage: UNK
     Route: 061
  14. BACLOFEN [Suspect]
     Active Substance: BACLOFEN
     Dosage: UNK
     Route: 048
  15. BACLOFEN [Suspect]
     Active Substance: BACLOFEN
     Dosage: UNK
     Route: 048
  16. BACLOFEN [Suspect]
     Active Substance: BACLOFEN
     Dosage: UNK
     Route: 061
  17. CERTOLIZUMAB PEGOL [Suspect]
     Active Substance: CERTOLIZUMAB PEGOL
     Indication: Ankylosing spondylitis
     Dosage: 1 DOSAGE FORM, BIWEEKLY (2 WEEKS)
     Dates: start: 20250601
  18. CERTOLIZUMAB PEGOL [Suspect]
     Active Substance: CERTOLIZUMAB PEGOL
     Dosage: 1 DOSAGE FORM, BIWEEKLY (2 WEEKS)
     Route: 058
     Dates: start: 20250601
  19. CERTOLIZUMAB PEGOL [Suspect]
     Active Substance: CERTOLIZUMAB PEGOL
     Dosage: 1 DOSAGE FORM, BIWEEKLY (2 WEEKS)
     Route: 058
     Dates: start: 20250601
  20. CERTOLIZUMAB PEGOL [Suspect]
     Active Substance: CERTOLIZUMAB PEGOL
     Dosage: 1 DOSAGE FORM, BIWEEKLY (2 WEEKS)
     Dates: start: 20250601
  21. COLCHICINE [Suspect]
     Active Substance: COLCHICINE
     Indication: Gouty tophus
     Dosage: 1 MILLIGRAM
     Route: 061
  22. COLCHICINE [Suspect]
     Active Substance: COLCHICINE
     Dosage: 1 MILLIGRAM
     Route: 048
  23. COLCHICINE [Suspect]
     Active Substance: COLCHICINE
     Dosage: 1 MILLIGRAM
     Route: 048
  24. COLCHICINE [Suspect]
     Active Substance: COLCHICINE
     Dosage: 1 MILLIGRAM
     Route: 061
  25. DARIDOREXANT HYDROCHLORIDE [Suspect]
     Active Substance: DARIDOREXANT HYDROCHLORIDE
     Indication: Insomnia
     Dosage: 50 MILLIGRAM
     Route: 061
  26. DARIDOREXANT HYDROCHLORIDE [Suspect]
     Active Substance: DARIDOREXANT HYDROCHLORIDE
     Dosage: 50 MILLIGRAM
     Route: 048
  27. DARIDOREXANT HYDROCHLORIDE [Suspect]
     Active Substance: DARIDOREXANT HYDROCHLORIDE
     Dosage: 50 MILLIGRAM
     Route: 048
  28. DARIDOREXANT HYDROCHLORIDE [Suspect]
     Active Substance: DARIDOREXANT HYDROCHLORIDE
     Dosage: 50 MILLIGRAM
     Route: 061

REACTIONS (1)
  - Hepatitis acute [Not Recovered/Not Resolved]

NARRATIVE: CASE EVENT DATE: 20250901
